FAERS Safety Report 16761619 (Version 1)
Quarter: 2019Q3

REPORT INFORMATION
  Report Type: Spontaneous
  Country: US (occurrence: US)
  Receive Date: 20190830
  Receipt Date: 20190830
  Transmission Date: 20191005
  Serious: Yes (Death, Other)
  Sender: FDA-Public Use
  Company Number: PHEH2019US003026

PATIENT
  Sex: Male

DRUGS (2)
  1. PROMACTA [Suspect]
     Active Substance: ELTROMBOPAG OLAMINE
     Dosage: 50 MG, QD (CONCENTRATION: 50 MG)
     Route: 048
     Dates: start: 20190807
  2. PROMACTA [Suspect]
     Active Substance: ELTROMBOPAG OLAMINE
     Indication: IMMUNE THROMBOCYTOPENIC PURPURA
     Dosage: 50 MG, QD (CONCENTRATION: 25 MG)
     Route: 048
     Dates: start: 201607

REACTIONS (7)
  - Cardiac disorder [Unknown]
  - Death [Fatal]
  - Anxiety [Unknown]
  - Depression [Unknown]
  - Parkinson^s disease [Unknown]
  - Cerebrovascular accident [Unknown]
  - Dementia Alzheimer^s type [Unknown]
